FAERS Safety Report 14193846 (Version 1)
Quarter: 2017Q4

REPORT INFORMATION
  Report Type: Report from Study
  Country: DE (occurrence: DE)
  Receive Date: 20171116
  Receipt Date: 20171116
  Transmission Date: 20180321
  Serious: Yes (Other)
  Sender: FDA-Public Use
  Company Number: DE-ROCHE-2024103

PATIENT
  Age: 60 Year
  Sex: Male
  Weight: 79.5 kg

DRUGS (3)
  1. INTERFERON ALFA-2A [Suspect]
     Active Substance: INTERFERON ALFA-2A
     Indication: METASTATIC RENAL CELL CARCINOMA
     Route: 058
     Dates: start: 20100429, end: 20100705
  2. BENURON [Concomitant]
     Indication: PYREXIA
     Dosage: AS NEEDED
     Route: 065
  3. BEVACIZUMAB. [Suspect]
     Active Substance: BEVACIZUMAB
     Indication: METASTATIC RENAL CELL CARCINOMA
     Route: 042
     Dates: start: 20100429, end: 20100623

REACTIONS (4)
  - Retinal haemorrhage [Unknown]
  - Eye haemorrhage [Unknown]
  - Retinal exudates [Recovering/Resolving]
  - Impaired healing [Unknown]

NARRATIVE: CASE EVENT DATE: 20100504
